FAERS Safety Report 21015549 (Version 1)
Quarter: 2022Q2

REPORT INFORMATION
  Report Type: Spontaneous
  Country: AU (occurrence: AU)
  Receive Date: 20220628
  Receipt Date: 20220628
  Transmission Date: 20220721
  Serious: Yes (Other)
  Sender: FDA-Public Use
  Company Number: AU-GE HEALTHCARE-2022CSU004330

PATIENT
  Age: 60 Year
  Sex: Female
  Weight: 57 kg

DRUGS (5)
  1. OMNIPAQUE [Suspect]
     Active Substance: IOHEXOL
     Indication: Computerised tomogram thorax
     Dosage: 80 ML AT 4.0 ML/SEC, ONCE
     Route: 042
     Dates: start: 20220525, end: 20220525
  2. OMNIPAQUE [Suspect]
     Active Substance: IOHEXOL
     Indication: Chest pain
  3. Ostelin vitamin d + calcium [Concomitant]
     Dosage: UNK, BID
  4. PROGESTERONE [Concomitant]
     Active Substance: PROGESTERONE
     Dosage: UNK, QD
     Route: 061
  5. MAGNESIUM [Concomitant]
     Active Substance: MAGNESIUM
     Dosage: 150 MG, BID

REACTIONS (4)
  - Dry skin [Recovering/Resolving]
  - Rash macular [Recovered/Resolved]
  - Erythema [Recovered/Resolved]
  - Pruritus [Recovered/Resolved]

NARRATIVE: CASE EVENT DATE: 20220525
